FAERS Safety Report 5358346-9 (Version None)
Quarter: 2007Q2

REPORT INFORMATION
  Report Type: 
  Country: None (occurrence: None)
  Receive Date: 20070613
  Receipt Date: 20070613
  Transmission Date: 20071010
  Serious: Yes (Hospitalization)
  Sender: FDA-Public Use
  Company Number: None

PATIENT
  Sex: Male
  Weight: 83.5 kg

DRUGS (3)
  1. FLUOROURACIL [Suspect]
     Dosage: 5520 MG
     Dates: end: 20070601
  2. LEUCOVORIN CALCIUM [Suspect]
     Dosage: 790 MG
     Dates: end: 20070601
  3. ELOXATIN [Suspect]
     Dosage: 168 MG
     Dates: end: 20070601

REACTIONS (4)
  - BODY TEMPERATURE INCREASED [None]
  - COUGH [None]
  - FATIGUE [None]
  - LUNG INFILTRATION [None]
